FAERS Safety Report 7692759-5 (Version None)
Quarter: 2011Q3

REPORT INFORMATION
  Report Type: 
  Country: None (occurrence: None)
  Receive Date: 20110819
  Receipt Date: 20110808
  Transmission Date: 20111222
  Serious: Yes (Hospitalization, Other)
  Sender: FDA-Public Use
  Company Number: US-ELI_LILLY_AND_COMPANY-US201108002801

PATIENT
  Sex: Female

DRUGS (1)
  1. FORTEO [Suspect]
     Dosage: 20 UG, QD
     Route: 065

REACTIONS (5)
  - INTESTINAL OBSTRUCTION [None]
  - GALLBLADDER OPERATION [None]
  - PNEUMONIA [None]
  - MALAISE [None]
  - BRONCHITIS [None]
